FAERS Safety Report 9927878 (Version 1)
Quarter: 2014Q1

REPORT INFORMATION
  Report Type: Spontaneous
  Country: BR (occurrence: None)
  Receive Date: 20140224
  Receipt Date: 20140224
  Transmission Date: 20141002
  Serious: Yes (Hospitalization)
  Sender: FDA-Public Use
  Company Number: 2014P1001383

PATIENT
  Age: 45 Year
  Sex: Female

DRUGS (1)
  1. PHENYTOIN [Suspect]
     Indication: CONVULSION PROPHYLAXIS

REACTIONS (12)
  - Drug reaction with eosinophilia and systemic symptoms [None]
  - Eosinophilic oesophagitis [None]
  - Lymphadenopathy [None]
  - Pyrexia [None]
  - Thrombocytopenia [None]
  - Hepatic enzyme increased [None]
  - Hypergammaglobulinaemia [None]
  - Gastrointestinal haemorrhage [None]
  - Eczema [None]
  - Epstein-Barr virus antibody positive [None]
  - Cytomegalovirus test positive [None]
  - Hepatitis A antibody positive [None]
